FAERS Safety Report 4638358-0 (Version None)
Quarter: 2005Q2

REPORT INFORMATION
  Report Type: 
  Country: None (occurrence: None)
  Receive Date: 20050415
  Receipt Date: 20050406
  Transmission Date: 20051028
  Serious: Yes (Life-Threatening, Hospitalization)
  Sender: FDA-Public Use
  Company Number: 2005-04-0183

PATIENT
  Age: 56 Year
  Sex: Female
  Weight: 60 kg

DRUGS (1)
  1. PEG-INTRON [Suspect]
     Indication: HEPATITIS VIRAL
     Dosage: 80 MCG QW SUBCUTANEOUS
     Route: 058
     Dates: start: 20040308, end: 20040601

REACTIONS (4)
  - AMNESIA [None]
  - ARTHRITIS [None]
  - FATIGUE [None]
  - HYPOTONIA [None]
